FAERS Safety Report 9335591 (Version 2)
Quarter: 2013Q4

REPORT INFORMATION
  Report Type: Report from Study
  Country: NL (occurrence: NL)
  Receive Date: 20130607
  Receipt Date: 20131119
  Transmission Date: 20140711
  Serious: Yes (Death)
  Sender: FDA-Public Use
  Company Number: NL-ROCHE-1232766

PATIENT
  Age: 89 Year
  Sex: Male

DRUGS (33)
  1. MIRCERA [Suspect]
     Indication: PRODUCT USED FOR UNKNOWN INDICATION
     Dosage: 333 MCG/ML WWSP 0.3 ML
     Route: 058
     Dates: start: 20090105, end: 20090320
  2. MIRCERA [Suspect]
     Route: 058
     Dates: start: 20090320, end: 20110207
  3. MIRCERA [Suspect]
     Route: 058
     Dates: start: 20110207, end: 20120530
  4. MIRCERA [Suspect]
     Route: 058
     Dates: start: 20121015
  5. NEORECORMON [Suspect]
     Indication: PRODUCT USED FOR UNKNOWN INDICATION
     Dosage: 6000IU/0.3ML WWSP
     Route: 065
     Dates: start: 20120530, end: 20121015
  6. PARACETAMOL [Concomitant]
     Route: 048
  7. OXYCONTIN [Concomitant]
     Route: 048
  8. TRAMADOL HCL [Concomitant]
     Route: 048
  9. OMEPRAZOLE [Concomitant]
     Route: 048
  10. PREDNISONE [Concomitant]
     Route: 048
  11. INHIBIN [Concomitant]
     Route: 048
  12. NEXIUM [Concomitant]
     Route: 048
  13. FLUCLOXACILLIN [Concomitant]
     Route: 048
  14. CALCICHEW D3 [Concomitant]
     Dosage: 500MG/400 IU.
     Route: 048
  15. HYDROCOBAMINE [Concomitant]
     Dosage: 500MCG/ML, 2 ML AMPOULE.
     Route: 065
  16. OXAZEPAM [Concomitant]
     Route: 048
  17. IPRATROPIUM [Concomitant]
     Route: 045
  18. CELLUVISC [Concomitant]
     Dosage: 10MG/ML.
     Route: 031
  19. RANITIDINE [Concomitant]
     Route: 048
  20. EMCORETIC [Concomitant]
     Dosage: 10/25 MG
     Route: 048
  21. TILDIEM XR [Concomitant]
     Route: 048
  22. ATACAND [Concomitant]
     Route: 048
  23. QUESTRAN [Concomitant]
     Route: 048
  24. ALLOPURINOL [Concomitant]
     Route: 048
  25. DESURIC [Concomitant]
     Route: 048
  26. COLCHICINE [Concomitant]
     Route: 048
  27. NITRAZEPAM [Concomitant]
     Route: 048
  28. TEMAZEPAM [Concomitant]
     Route: 048
  29. FERROFUMARAT [Concomitant]
     Route: 048
  30. FOLIC ACID [Concomitant]
     Route: 048
  31. FUROSEMIDE [Concomitant]
     Route: 048
  32. ACETYLSALICYLIC ACID [Concomitant]
     Route: 048
  33. LOPERAMIDE [Concomitant]
     Route: 048

REACTIONS (1)
  - Death [Fatal]
